FAERS Safety Report 9490430 (Version 3)
Quarter: 2013Q3

REPORT INFORMATION
  Report Type: Spontaneous
  Country: US (occurrence: US)
  Receive Date: 20130830
  Receipt Date: 20130927
  Transmission Date: 20140515
  Serious: No
  Sender: FDA-Public Use
  Company Number: US-009507513-1308USA014554

PATIENT
  Age: 43 Year
  Sex: Female
  Weight: 54.42 kg

DRUGS (1)
  1. SAPHRIS [Suspect]
     Indication: MENTAL DISORDER
     Dosage: 5 MG, QD, RAPID DISSOLVE 5
     Route: 060
     Dates: start: 201102

REACTIONS (7)
  - Mood swings [Recovered/Resolved]
  - Crying [Recovered/Resolved]
  - Anger [Recovered/Resolved]
  - Thinking abnormal [Not Recovered/Not Resolved]
  - Agitation [Recovered/Resolved]
  - Drug ineffective [Not Recovered/Not Resolved]
  - Suicidal ideation [Recovered/Resolved]
